FAERS Safety Report 8835285 (Version 1)
Quarter: 2012Q4

REPORT INFORMATION
  Report Type: 
  Country: US (occurrence: US)
  Receive Date: 20121011
  Receipt Date: 20121011
  Transmission Date: 20130627
  Serious: No
  Sender: FDA-Public Use
  Company Number: US-B.I. PHARMACEUTICALS,INC./RIDGEFIELD-2012-BP-23943BP

PATIENT
  Age: 69 Year
  Sex: Female

DRUGS (8)
  1. PRADAXA [Suspect]
     Indication: ATRIAL FIBRILLATION
     Dosage: 300 mg
     Route: 048
     Dates: start: 201012
  2. HCTZ 25 [Concomitant]
     Indication: HYPERTENSION
     Dosage: 25 mg
     Route: 048
  3. AMIODARONE [Concomitant]
     Indication: ARRHYTHMIA
     Dosage: 200 mg
     Route: 048
  4. TRAMADOL [Concomitant]
     Indication: PAIN
     Dosage: 200 mg
     Route: 048
  5. ASA [Concomitant]
     Indication: ATRIAL FIBRILLATION
     Dosage: 81 mg
     Route: 048
  6. METFORMIN [Concomitant]
     Indication: DIABETES MELLITUS
     Dosage: 500 mg
     Route: 048
  7. ATENOLOL [Concomitant]
     Indication: HYPERTENSION
     Dosage: 50 mg
     Route: 048
  8. SIMVASTATIN [Concomitant]
     Indication: HYPERCHOLESTEROLAEMIA
     Dosage: 20 mg
     Route: 048

REACTIONS (1)
  - Exfoliative rash [Not Recovered/Not Resolved]
